FAERS Safety Report 14104238 (Version 6)
Quarter: 2018Q1

REPORT INFORMATION
  Report Type: Report from Study
  Country: JP (occurrence: JP)
  Receive Date: 20171018
  Receipt Date: 20180110
  Transmission Date: 20180508
  Serious: Yes (Death, Other)
  Sender: FDA-Public Use
  Company Number: JP-B.I. PHARMACEUTICALS,INC./RIDGEFIELD-2017-NB-005778

PATIENT
  Age: 50 Year
  Sex: Male
  Weight: 58.1 kg

DRUGS (15)
  1. PRAZAXA [Suspect]
     Active Substance: DABIGATRAN ETEXILATE MESYLATE
     Indication: ATRIAL FIBRILLATION
     Route: 048
     Dates: start: 20170922, end: 20171004
  2. OMEPRAZOLE. [Concomitant]
     Active Substance: OMEPRAZOLE
     Indication: PROPHYLAXIS
     Route: 042
     Dates: start: 20171003, end: 20171003
  3. HEPARIN SODIUM. [Concomitant]
     Active Substance: HEPARIN SODIUM
     Indication: CAROTID ARTERY STENT INSERTION
     Route: 042
     Dates: start: 20171004, end: 20171004
  4. BAYASPIRIN [Suspect]
     Active Substance: ASPIRIN
     Indication: PROPHYLAXIS
     Route: 048
     Dates: start: 20170919, end: 20171004
  5. EBRANTIL [Concomitant]
     Active Substance: URAPIDIL
     Indication: PRODUCT USED FOR UNKNOWN INDICATION
     Route: 048
     Dates: end: 20171004
  6. EDARAVONE [Concomitant]
     Active Substance: EDARAVONE
     Indication: PROPHYLAXIS
     Route: 042
     Dates: end: 20170926
  7. OMEPRAZOLE. [Concomitant]
     Active Substance: OMEPRAZOLE
     Indication: PROPHYLAXIS
     Route: 042
     Dates: start: 20171005, end: 20171005
  8. LANSOPRAZOLE. [Concomitant]
     Active Substance: LANSOPRAZOLE
     Indication: PROPHYLAXIS
     Route: 048
     Dates: start: 20170922, end: 20171004
  9. CRESTOR [Concomitant]
     Active Substance: ROSUVASTATIN CALCIUM
     Indication: PRODUCT USED FOR UNKNOWN INDICATION
     Route: 048
     Dates: start: 20170922, end: 20171004
  10. LOBU [Concomitant]
     Active Substance: LOBUCAVIR
     Indication: PRODUCT USED FOR UNKNOWN INDICATION
     Route: 048
     Dates: end: 20171003
  11. INTEBAN [Concomitant]
     Active Substance: INDOMETHACIN
     Indication: PRODUCT USED FOR UNKNOWN INDICATION
     Route: 054
     Dates: start: 20171005, end: 20171005
  12. PLAVIX [Suspect]
     Active Substance: CLOPIDOGREL BISULFATE
     Indication: PROPHYLAXIS
     Route: 048
     Dates: start: 20170919, end: 20171004
  13. PERFUSAMINE [Suspect]
     Active Substance: IOFETAMINE HYDROCHLORIDE I-123
     Indication: IMAGING PROCEDURE
     Route: 042
     Dates: start: 20171003, end: 20171003
  14. GLYPOSE [Concomitant]
     Active Substance: FRUCTOSE\GLYCERIN
     Indication: PROPHYLAXIS
     Route: 042
     Dates: end: 20170924
  15. CEFAZOLIN NA [Concomitant]
     Active Substance: CEFAZOLIN SODIUM
     Indication: PROPHYLAXIS
     Route: 042
     Dates: start: 20171004, end: 20171005

REACTIONS (6)
  - Carotid artery dissection [Not Recovered/Not Resolved]
  - Nausea [Recovered/Resolved]
  - Drug ineffective [Unknown]
  - Haemorrhagic infarction [Fatal]
  - Cerebral infarction [Not Recovered/Not Resolved]
  - Hypertension [Recovered/Resolved]

NARRATIVE: CASE EVENT DATE: 20171003
